FAERS Safety Report 13142066 (Version 2)
Quarter: 2017Q1

REPORT INFORMATION
  Report Type: Spontaneous
  Country: US (occurrence: US)
  Receive Date: 20170123
  Receipt Date: 20170313
  Transmission Date: 20170428
  Serious: No
  Sender: FDA-Public Use
  Company Number: US-ELI_LILLY_AND_COMPANY-US201607008312

PATIENT
  Sex: Female

DRUGS (4)
  1. CYMBALTA [Suspect]
     Active Substance: DULOXETINE HYDROCHLORIDE
     Indication: DEPRESSION
     Dosage: 30 MG, QD
     Route: 048
     Dates: start: 20100621
  2. CYMBALTA [Suspect]
     Active Substance: DULOXETINE HYDROCHLORIDE
     Indication: ANXIETY
     Dosage: 60 MG, QD
     Route: 048
     Dates: start: 20100722
  3. CYMBALTA [Suspect]
     Active Substance: DULOXETINE HYDROCHLORIDE
     Dosage: 60 MG, EVERY 2 DAYS FOR A WEEK
     Route: 048
     Dates: end: 201503
  4. CYMBALTA [Suspect]
     Active Substance: DULOXETINE HYDROCHLORIDE
     Dosage: 60 MG, QOD
     Route: 048

REACTIONS (13)
  - Confusional state [Unknown]
  - Paraesthesia [Unknown]
  - Agitation [Unknown]
  - Affect lability [Unknown]
  - Vertigo [Unknown]
  - Drug withdrawal syndrome [Unknown]
  - Fatigue [Unknown]
  - Irritability [Unknown]
  - Headache [Unknown]
  - Dysphoria [Unknown]
  - Nausea [Unknown]
  - Dizziness [Unknown]
  - Tinnitus [Unknown]
